FAERS Safety Report 5816814-7 (Version None)
Quarter: 2008Q3

REPORT INFORMATION
  Report Type: 
  Country: None (occurrence: None)
  Receive Date: 20080721
  Receipt Date: 20080710
  Transmission Date: 20090109
  Serious: Yes (Hospitalization)
  Sender: FDA-Public Use
  Company Number: DE-ELI_LILLY_AND_COMPANY-DE200807002114

PATIENT
  Age: 59 Year
  Sex: Male

DRUGS (4)
  1. CYMBALTA [Suspect]
     Indication: DEPRESSION
     Dosage: UNK, UNKNOWN
     Route: 048
     Dates: start: 20080129
  2. CYMBALTA [Suspect]
     Dosage: 2X60 MG
     Route: 048
     Dates: start: 20080129
  3. LAUBEEL [Concomitant]
     Dosage: UNK, UNKNOWN
     Route: 065
  4. MIRTAZAPINE [Concomitant]
     Dosage: 15-30 MG
     Route: 048

REACTIONS (1)
  - DEPRESSION [None]
